FAERS Safety Report 8422542-4 (Version None)
Quarter: 2012Q2

REPORT INFORMATION
  Report Type: 
  Country: None (occurrence: None)
  Receive Date: 20120323
  Receipt Date: 20110823
  Transmission Date: 20120825
  Serious: Yes (Other)
  Sender: FDA-Public Use
  Company Number: 163-21880-11082692

PATIENT
  Age: 80 Year
  Sex: Female

DRUGS (1)
  1. LENALIDOMIDE [Suspect]
     Indication: MYELODYSPLASTIC SYNDROME
     Dosage: 15 MG, QD, PO
     Route: 048
     Dates: start: 20110609, end: 20110706

REACTIONS (2)
  - MYELODYSPLASTIC SYNDROME [None]
  - DISEASE PROGRESSION [None]
